FAERS Safety Report 5299419-9 (Version None)
Quarter: 2007Q2

REPORT INFORMATION
  Report Type: 
  Country: None (occurrence: None)
  Receive Date: 20070417
  Receipt Date: 20070410
  Transmission Date: 20071010
  Serious: Yes (Hospitalization)
  Sender: FDA-Public Use
  Company Number: FR-BRISTOL-MYERS SQUIBB COMPANY-13745724

PATIENT
  Age: 64 Year
  Sex: Male

DRUGS (8)
  1. VIDEX EC [Suspect]
     Indication: HIV INFECTION
     Route: 048
  2. KALETRA [Suspect]
     Indication: HIV INFECTION
     Route: 048
  3. EPIVIR [Suspect]
     Indication: HIV INFECTION
     Dates: start: 20060511
  4. RIMIFON [Suspect]
  5. BACTRIM [Suspect]
     Indication: ANTIFUNGAL PROPHYLAXIS
  6. ANSATIPINE [Suspect]
  7. AZITROMAX [Suspect]
  8. VITAMIN B1 + B6 [Concomitant]

REACTIONS (5)
  - ANOREXIA [None]
  - DERMATITIS EXFOLIATIVE [None]
  - DIARRHOEA [None]
  - RENAL FAILURE [None]
  - SEPTIC SHOCK [None]
